FAERS Safety Report 7138192-6 (Version None)
Quarter: 2010Q4

REPORT INFORMATION
  Report Type: 
  Country: None (occurrence: None)
  Receive Date: 20101206
  Receipt Date: 20100722
  Transmission Date: 20110411
  Serious: No
  Sender: FDA-Public Use
  Company Number: US-ABBOTT-10P-163-0659654-00

PATIENT
  Age: 71 Year
  Sex: Female

DRUGS (8)
  1. OMNICEF [Suspect]
  2. HUMALOG [Concomitant]
     Indication: DIABETES MELLITUS
  3. LANTUS [Concomitant]
     Indication: DIABETES MELLITUS
  4. ETODOLAC [Concomitant]
     Indication: ARTHRITIS
  5. TRICOR [Concomitant]
     Indication: BLOOD CHOLESTEROL INCREASED
  6. ZETIA [Concomitant]
     Indication: BLOOD CHOLESTEROL INCREASED
  7. VITAMIN D [Concomitant]
  8. OXYDONE [Concomitant]
     Indication: PAIN

REACTIONS (1)
  - RASH [None]
